FAERS Safety Report 10249010 (Version 1)
Quarter: 2014Q2

REPORT INFORMATION
  Report Type: Spontaneous
  Country: US (occurrence: US)
  Receive Date: 20140620
  Receipt Date: 20140620
  Transmission Date: 20141212
  Serious: Yes (Other)
  Sender: FDA-Public Use
  Company Number: US-ASTRAZENECA-2014SE44136

PATIENT
  Age: 62 Year
  Sex: Female
  Weight: 62.1 kg

DRUGS (9)
  1. PULMICORT [Suspect]
     Indication: BRONCHITIS
     Route: 055
     Dates: start: 1979, end: 2014
  2. PULMICORT [Suspect]
     Indication: HOUSE DUST ALLERGY
     Route: 055
     Dates: start: 1979, end: 2014
  3. PULMICORT [Suspect]
     Indication: ASTHMA
     Route: 055
     Dates: start: 1979, end: 2014
  4. PULMICORT [Suspect]
     Indication: BRONCHITIS
     Route: 055
     Dates: start: 2014
  5. PULMICORT [Suspect]
     Indication: HOUSE DUST ALLERGY
     Route: 055
     Dates: start: 2014
  6. PULMICORT [Suspect]
     Indication: ASTHMA
     Route: 055
     Dates: start: 2014
  7. LEVOTHYROXINE [Concomitant]
     Indication: THYROID DISORDER
     Route: 048
     Dates: start: 2012
  8. CITALOPRAM [Concomitant]
     Indication: ANXIETY
     Route: 048
  9. OXYBUTRIN [Concomitant]
     Indication: INCONTINENCE
     Route: 061

REACTIONS (11)
  - Fungal infection [Unknown]
  - Blood immunoglobulin E increased [Unknown]
  - Sinusitis [Unknown]
  - Bronchitis [Unknown]
  - Chronic obstructive pulmonary disease [Unknown]
  - Body height decreased [Unknown]
  - Arthritis [Unknown]
  - Osteoporosis [Unknown]
  - Hearing impaired [Unknown]
  - Sleep apnoea syndrome [Unknown]
  - Off label use [Unknown]
